FAERS Safety Report 4920544-3 (Version None)
Quarter: 2006Q1

REPORT INFORMATION
  Report Type: 
  Country: None (occurrence: None)
  Receive Date: 20060223
  Receipt Date: 20050614
  Transmission Date: 20060701
  Serious: Yes (Death, Disabling)
  Sender: FDA-Public Use
  Company Number: JP-SANOFI-SYNTHELABO-F01200501017

PATIENT
  Age: 50 Year
  Sex: Male

DRUGS (5)
  1. OXALIPLATIN [Suspect]
     Indication: RECTAL CANCER
     Route: 042
     Dates: start: 20050511, end: 20050511
  2. FLUOROURACIL [Suspect]
     Dosage: 400 MG/M2 IV BOLUS AND 600 MG/M2 IV CONTINUOUS INFUSION, Q2W
     Route: 042
     Dates: start: 20050511, end: 20050512
  3. CALCIUM LEVOFOLINATE [Suspect]
     Route: 042
     Dates: start: 20050511, end: 20050512
  4. OXYCONTIN [Concomitant]
     Route: 048
  5. WHOLE BLOOD [Concomitant]
     Route: 042
     Dates: start: 20050623, end: 20050624

REACTIONS (9)
  - ABSCESS [None]
  - BONE MARROW FAILURE [None]
  - DISEASE PROGRESSION [None]
  - DISSEMINATED INTRAVASCULAR COAGULATION [None]
  - INTESTINAL OBSTRUCTION [None]
  - LEUKOPENIA [None]
  - NEUTROPENIA [None]
  - RESPIRATORY FAILURE [None]
  - THROMBOCYTOPENIA [None]
